FAERS Safety Report 4966900-9 (Version None)
Quarter: 2006Q2

REPORT INFORMATION
  Report Type: 
  Country: None (occurrence: None)
  Receive Date: 20060407
  Receipt Date: 20060322
  Transmission Date: 20061013
  Serious: Yes (Hospitalization)
  Sender: FDA-Public Use
  Company Number: AU-MERCK-0603AUS00193

PATIENT
  Age: 61 Year
  Sex: Female

DRUGS (6)
  1. TIROFIBAN HYDROCHLORIDE [Suspect]
     Route: 041
  2. ASPIRIN [Suspect]
     Route: 048
  3. CLOPIDOGREL BISULFATE [Suspect]
     Route: 048
     Dates: start: 20040820
  4. PROPOXYPHENE HYDROCHLORIDE [Concomitant]
     Route: 048
  5. VIOXX [Suspect]
     Indication: OSTEOARTHRITIS
     Route: 048
     Dates: end: 20040821
  6. SIMVASTATIN [Concomitant]
     Route: 048

REACTIONS (5)
  - ACUTE MYOCARDIAL INFARCTION [None]
  - CHEST PAIN [None]
  - DYSPNOEA [None]
  - GASTROINTESTINAL HAEMORRHAGE [None]
  - HAEMOGLOBIN DECREASED [None]
